FAERS Safety Report 6709074-6 (Version None)
Quarter: 2010Q2

REPORT INFORMATION
  Report Type: 
  Country: None (occurrence: None)
  Receive Date: 20100429
  Receipt Date: 20100416
  Transmission Date: 20101027
  Serious: Yes (Other)
  Sender: FDA-Public Use
  Company Number: TPA2010A02223

PATIENT
  Age: 53 Year
  Sex: Male

DRUGS (6)
  1. ADENURIC (FEBUXOSTAT) [Suspect]
     Indication: GOUT
     Dosage: ORAL
     Route: 048
     Dates: start: 20100311, end: 20100301
  2. ALEVE [Concomitant]
  3. COLCHIMAX  (COLCHICINE, TIEMONIUM METHYLSULFATE, PAPAVER, SOMNIFERUM P [Concomitant]
  4. SIMVASTATIN [Concomitant]
  5. MICARDIS [Concomitant]
  6. AMLODIPINE [Concomitant]

REACTIONS (6)
  - AGITATION [None]
  - DIZZINESS [None]
  - FATIGUE [None]
  - HEADACHE [None]
  - POOR QUALITY SLEEP [None]
  - SLEEP TALKING [None]
